FAERS Safety Report 9241510 (Version 2)
Quarter: 2013Q3

REPORT INFORMATION
  Report Type: Spontaneous
  Country: US (occurrence: US)
  Receive Date: 20130419
  Receipt Date: 20130703
  Transmission Date: 20140515
  Serious: Yes (Hospitalization, Other)
  Sender: FDA-Public Use
  Company Number: US-ENDO PHARMACEUTICALS INC.-FORT20130111

PATIENT
  Age: 29 Year
  Sex: Male

DRUGS (4)
  1. FORTESTA [Suspect]
     Indication: BLOOD TESTOSTERONE DECREASED
     Dosage: 10 MG
     Route: 061
  2. PREDNISONE TABLETS [Suspect]
     Indication: DERMATITIS ALLERGIC
     Dosage: 60 MG, 50 MG, 40 MG, ETC. TAPERING DOSE
     Route: 048
  3. ANDRODERM [Concomitant]
     Indication: BLOOD TESTOSTERONE DECREASED
     Dosage: UNK
     Route: 062
  4. MEDROL [Concomitant]
     Indication: PRODUCT USED FOR UNKNOWN INDICATION
     Dosage: UNK
     Route: 065

REACTIONS (4)
  - Suicide attempt [Recovered/Resolved]
  - Potentiating drug interaction [Recovered/Resolved]
  - Delirium [Recovered/Resolved]
  - Substance-induced psychotic disorder [Recovered/Resolved]
